FAERS Safety Report 23294426 (Version 2)
Quarter: 2025Q2

REPORT INFORMATION
  Report Type: Spontaneous
  Country: US (occurrence: US)
  Receive Date: 20231213
  Receipt Date: 20250522
  Transmission Date: 20250716
  Serious: No
  Sender: GALDERMA
  Company Number: US-GALDERMA-US2023018983

PATIENT

DRUGS (7)
  1. PROACTIV MD ADAPALENE ACNE TREATMENT [Suspect]
     Active Substance: ADAPALENE
     Indication: Acne
     Route: 061
     Dates: start: 2023, end: 202502
  2. COSMETICS [Concomitant]
     Active Substance: COSMETICS
     Indication: Acne
     Route: 061
     Dates: start: 2023, end: 202502
  3. COSMETICS [Concomitant]
     Active Substance: COSMETICS
     Indication: Acne
  4. COSMETICS [Concomitant]
     Active Substance: COSMETICS
     Indication: Acne
     Route: 061
     Dates: start: 2023, end: 202502
  5. COSMETICS [Concomitant]
     Active Substance: COSMETICS
     Indication: Acne
  6. Proactiv Zits Happen Patches [Concomitant]
     Indication: Acne
     Route: 061
     Dates: start: 2023, end: 202502
  7. Proactiv Zits Happen Patches [Concomitant]
     Indication: Acne

REACTIONS (2)
  - Dry skin [Recovered/Resolved]
  - Skin exfoliation [Recovered/Resolved]

NARRATIVE: CASE EVENT DATE: 20230101
